FAERS Safety Report 4297284-X (Version None)
Quarter: 2004Q1

REPORT INFORMATION
  Report Type: 
  Country: None (occurrence: None)
  Receive Date: 20040213
  Receipt Date: 20040203
  Transmission Date: 20041129
  Serious: Yes (Other)
  Sender: FDA-Public Use
  Company Number: US-JNJFOC-20040200784

PATIENT
  Sex: Male

DRUGS (1)
  1. REMICADE [Suspect]
     Indication: RHEUMATOID ARTHRITIS
     Dosage: 50 CENTIMETER, INTRAVENOUS
     Route: 042
     Dates: start: 20040202

REACTIONS (4)
  - ARTHRALGIA [None]
  - CHEST PAIN [None]
  - ERYTHEMA [None]
  - PAIN IN EXTREMITY [None]
